FAERS Safety Report 6392829-8 (Version None)
Quarter: 2009Q4

REPORT INFORMATION
  Report Type: 
  Country: None (occurrence: None)
  Receive Date: 20091007
  Receipt Date: 20090826
  Transmission Date: 20100525
  Serious: No
  Sender: FDA-Public Use
  Company Number: US-ALLERGAN-0911991US

PATIENT
  Age: 27 Year
  Sex: Female

DRUGS (4)
  1. LATISSE [Suspect]
     Indication: HYPOTRICHOSIS
     Dosage: 1 GTT, QHS
     Route: 061
     Dates: start: 20090601
  2. LATISSE [Suspect]
     Indication: ACCIDENTAL EXPOSURE
     Dosage: 1 GTT, UNKNOWN
     Route: 061
     Dates: start: 20090101
  3. MAKEUP [Concomitant]
  4. EYELINER [Concomitant]

REACTIONS (6)
  - ACCIDENTAL EXPOSURE [None]
  - APPLICATION SITE ERYTHEMA [None]
  - DRUG ADMINISTRATION ERROR [None]
  - INAPPROPRIATE SCHEDULE OF DRUG ADMINISTRATION [None]
  - OCULAR HYPERAEMIA [None]
  - THERAPEUTIC RESPONSE DECREASED [None]
